FAERS Safety Report 8747087 (Version 2)
Quarter: 2012Q4

REPORT INFORMATION
  Report Type: 
  Country: AU (occurrence: AU)
  Receive Date: 20120827
  Receipt Date: 20120905
  Transmission Date: 20130627
  Serious: Yes (Death)
  Sender: FDA-Public Use
  Company Number: AU-B.I. PHARMACEUTICALS,INC./RIDGEFIELD-2012-AU-01511AU

PATIENT
  Age: 93 Year
  Sex: Female

DRUGS (9)
  1. PRADAXA [Suspect]
     Indication: CEREBROVASCULAR ACCIDENT PROPHYLAXIS
     Dosage: 220 mg
     Dates: start: 20110907, end: 20120814
  2. PRADAXA [Suspect]
     Indication: ATRIAL FIBRILLATION
  3. LIPITOR [Concomitant]
     Dosage: 40 mg
  4. LISINOPRIL [Concomitant]
     Dosage: 10 mg
  5. MINAX [Concomitant]
     Dosage: 50 mg
  6. PANADOL OSTEO [Concomitant]
  7. TEMAZE [Concomitant]
     Dosage: 10 mg
  8. TRAMAL [Concomitant]
     Dosage: 200 mg
  9. UREMIDE [Concomitant]
     Dosage: 40 mg

REACTIONS (3)
  - Respiratory arrest [Fatal]
  - Multi-organ failure [Fatal]
  - Colitis ischaemic [Fatal]
